FAERS Safety Report 24414697 (Version 1)
Quarter: 2024Q4

REPORT INFORMATION
  Report Type: Spontaneous
  Country: FR (occurrence: FR)
  Receive Date: 20241009
  Receipt Date: 20241009
  Transmission Date: 20250115
  Serious: Yes (Death, Other)
  Sender: AUROBINDO
  Company Number: FR-GERMAN-SPO/FRA/24/0013995

PATIENT
  Age: 31 Year

DRUGS (5)
  1. FOSFOMYCIN [Suspect]
     Active Substance: FOSFOMYCIN
     Indication: Endocarditis staphylococcal
     Dosage: UNK
     Route: 065
  2. LEVOFLOXACIN [Suspect]
     Active Substance: LEVOFLOXACIN
     Indication: Endocarditis staphylococcal
     Dosage: UNK
     Route: 065
  3. RIFAMPIN [Suspect]
     Active Substance: RIFAMPIN
     Indication: Endocarditis staphylococcal
     Dosage: UNK
     Route: 065
  4. DAPTOMYCIN [Suspect]
     Active Substance: DAPTOMYCIN
     Indication: Endocarditis staphylococcal
     Dosage: UNK (105 D, IV FOLLOWED BY ORAL SWITCH AT DAY 49)
     Route: 042
  5. DAPTOMYCIN [Suspect]
     Active Substance: DAPTOMYCIN
     Dosage: UNK (105 D, IV FOLLOWED BY ORAL SWITCH AT DAY 49)
     Route: 048

REACTIONS (2)
  - Beta haemolytic streptococcal infection [Fatal]
  - Drug ineffective for unapproved indication [Unknown]
